FAERS Safety Report 6598035-6 (Version None)
Quarter: 2010Q1

REPORT INFORMATION
  Report Type: 
  Country: None (occurrence: None)
  Receive Date: 20100216
  Receipt Date: 20100202
  Transmission Date: 20100710
  Serious: Yes (Other)
  Sender: FDA-Public Use
  Company Number: 2010BM000021

PATIENT
  Age: 15 Year
  Sex: Female
  Weight: 19 kg

DRUGS (2)
  1. NAGLAZYME [Suspect]
     Indication: MUCOPOLYSACCHARIDOSIS VI
     Dosage: 15 MG; QW; IVDRP, 15 MG; QW; IVDRP
     Route: 041
     Dates: start: 20090916, end: 20090101
  2. NAGLAZYME [Suspect]
     Indication: MUCOPOLYSACCHARIDOSIS VI
     Dosage: 15 MG; QW; IVDRP, 15 MG; QW; IVDRP
     Route: 041
     Dates: start: 20100101

REACTIONS (4)
  - ASTHENIA [None]
  - CELLULITIS [None]
  - FALL [None]
  - HIP FRACTURE [None]
